FAERS Safety Report 5719924-8 (Version None)
Quarter: 2008Q2

REPORT INFORMATION
  Report Type: 
  Country: None (occurrence: None)
  Receive Date: 20080425
  Receipt Date: 20080425
  Transmission Date: 20081010
  Serious: Yes (Hospitalization)
  Sender: FDA-Public Use
  Company Number: None

PATIENT
  Sex: Male
  Weight: 80.2867 kg

DRUGS (1)
  1. AVANDIA [Suspect]
     Dates: start: 20000101, end: 20051222

REACTIONS (1)
  - CARDIAC FAILURE CONGESTIVE [None]
